FAERS Safety Report 5490835-9 (Version None)
Quarter: 2007Q4

REPORT INFORMATION
  Report Type: 
  Country: None (occurrence: None)
  Receive Date: 20071019
  Receipt Date: 20071016
  Transmission Date: 20080405
  Serious: Yes (Hospitalization)
  Sender: FDA-Public Use
  Company Number: CA-WYE-G00414907

PATIENT
  Sex: Male
  Weight: 70.82 kg

DRUGS (6)
  1. TEMSIROLIMUS [Suspect]
     Indication: METASTATIC RENAL CELL CARCINOMA
     Route: 042
     Dates: start: 20070717, end: 20070918
  2. DEXAMETHASONE 0.5MG TAB [Concomitant]
     Dosage: 4 MG BID
  3. COLACE [Concomitant]
     Dosage: 100 MG BID
     Route: 048
  4. SENOKOT [Concomitant]
     Dosage: 8.6 MG BID
     Route: 048
  5. ATIVAN [Concomitant]
     Indication: SEDATION
     Dosage: 1 MG HS
  6. MORPHINE [Concomitant]
     Indication: PAIN
     Dosage: 3-5 MG PRN
     Route: 058

REACTIONS (1)
  - CONVULSION [None]
